FAERS Safety Report 11145406 (Version 2)
Quarter: 2015Q3

REPORT INFORMATION
  Report Type: Spontaneous
  Country: DE (occurrence: DE)
  Receive Date: 20150526
  Receipt Date: 20150810
  Transmission Date: 20151125
  Serious: Yes (Other)
  Sender: FDA-Public Use
  Company Number: DE-JNJFOC-20150513958

PATIENT
  Age: 56 Year
  Sex: Male
  Weight: 79 kg

DRUGS (3)
  1. STELARA [Suspect]
     Active Substance: USTEKINUMAB
     Indication: PSORIASIS
     Route: 058
     Dates: start: 20150717
  2. IBUPROFEN. [Concomitant]
     Active Substance: IBUPROFEN
     Dosage: IBUPROFEN 800 1-1-1
     Route: 065
  3. STELARA [Suspect]
     Active Substance: USTEKINUMAB
     Indication: PSORIASIS
     Route: 058
     Dates: start: 20131118, end: 20150519

REACTIONS (3)
  - Psoriasis [Unknown]
  - Hepatitis [Recovering/Resolving]
  - Arthralgia [Unknown]

NARRATIVE: CASE EVENT DATE: 20150316
